FAERS Safety Report 21926550 (Version 2)
Quarter: 2023Q1

REPORT INFORMATION
  Report Type: Spontaneous
  Country: US (occurrence: US)
  Receive Date: 20230130
  Receipt Date: 20230202
  Transmission Date: 20230418
  Serious: Yes (Death, Other)
  Sender: FDA-Public Use
  Company Number: US-INCYTE CORPORATION-2023IN000914

PATIENT

DRUGS (1)
  1. JAKAFI [Suspect]
     Active Substance: RUXOLITINIB
     Indication: Myelofibrosis
     Dosage: 5 MILLIGRAM, (2 TABLETS AM, 1 TABLET PM)
     Route: 048
     Dates: start: 202008

REACTIONS (4)
  - Death [Fatal]
  - Myelodysplastic syndrome [Unknown]
  - Myelofibrosis [Unknown]
  - Disease progression [Unknown]

NARRATIVE: CASE EVENT DATE: 20230119
